FAERS Safety Report 12853267 (Version 2)
Quarter: 2016Q4

REPORT INFORMATION
  Report Type: Spontaneous
  Country: ES (occurrence: ES)
  Receive Date: 20161017
  Receipt Date: 20161102
  Transmission Date: 20170207
  Serious: Yes (Death, Hospitalization, Other)
  Sender: FDA-Public Use
  Company Number: ES-CIPLA LTD.-2016ES19315

PATIENT

DRUGS (8)
  1. IFOSFAMIDE. [Suspect]
     Active Substance: IFOSFAMIDE
     Indication: EXTRA-OSSEOUS EWING^S SARCOMA METASTATIC
     Dosage: 1800 MG/M2, UNK
     Route: 065
     Dates: start: 2011, end: 201111
  2. DACARBAZINE. [Suspect]
     Active Substance: DACARBAZINE
     Indication: EXTRA-OSSEOUS EWING^S SARCOMA METASTATIC
     Dosage: 500 MG/M2, EVERY 2 WEEKS, 8 CYCLES
     Route: 065
     Dates: start: 201111, end: 201202
  3. CYCLOPHOSPHAMIDE. [Suspect]
     Active Substance: CYCLOPHOSPHAMIDE
     Indication: EXTRA-OSSEOUS EWING^S SARCOMA METASTATIC
     Dosage: 1200 MG/M2, UNK
     Route: 065
     Dates: start: 2011, end: 201111
  4. VINCRISTINE [Suspect]
     Active Substance: VINCRISTINE
     Indication: EXTRA-OSSEOUS EWING^S SARCOMA METASTATIC
     Dosage: 2 MG/M2, UNK
     Route: 065
     Dates: start: 2011, end: 201111
  5. DOXORUBICIN [Suspect]
     Active Substance: DOXORUBICIN
     Indication: EXTRA-OSSEOUS EWING^S SARCOMA METASTATIC
     Dosage: 75 MG/M2, UNK
     Route: 065
     Dates: start: 2011, end: 201111
  6. ETOPOSIDE. [Suspect]
     Active Substance: ETOPOSIDE
     Indication: EXTRA-OSSEOUS EWING^S SARCOMA METASTATIC
     Dosage: 100 MG/M2, UNK
     Route: 065
     Dates: start: 2011, end: 201111
  7. GEMCITABINE [Suspect]
     Active Substance: GEMCITABINE\GEMCITABINE HYDROCHLORIDE
     Indication: EXTRA-OSSEOUS EWING^S SARCOMA METASTATIC
     Dosage: 1800 MG/M2, EVERY 2 WEEKS, 8 CYCLES
     Route: 065
     Dates: start: 201111, end: 201202
  8. TRABECTEDIN [Suspect]
     Active Substance: TRABECTEDIN
     Indication: EXTRA-OSSEOUS EWING^S SARCOMA METASTATIC
     Dosage: 1.5 MG/M2, EVERY 3 WEEKS, 23 CYCLES
     Dates: start: 201203, end: 201308

REACTIONS (4)
  - Disease progression [Unknown]
  - Therapeutic response decreased [Unknown]
  - Spondyloarthropathy [Unknown]
  - Pneumonia [Fatal]

NARRATIVE: CASE EVENT DATE: 201309
